FAERS Safety Report 21411096 (Version 3)
Quarter: 2022Q4

REPORT INFORMATION
  Report Type: Spontaneous
  Country: US (occurrence: US)
  Receive Date: 20221005
  Receipt Date: 20221202
  Transmission Date: 20230113
  Serious: No
  Sender: FDA-Public Use
  Company Number: US-PFIZER INC-PV202200062550

PATIENT

DRUGS (1)
  1. DEXTROSE [Suspect]
     Active Substance: DEXTROSE
     Dosage: UNK

REACTIONS (3)
  - Poor quality device used [Unknown]
  - Device leakage [Unknown]
  - Device physical property issue [Unknown]
